FAERS Safety Report 4608282-8 (Version None)
Quarter: 2005Q1

REPORT INFORMATION
  Report Type: 
  Country: None (occurrence: None)
  Receive Date: 20050311
  Receipt Date: 20050228
  Transmission Date: 20050727
  Serious: Yes (Hospitalization)
  Sender: FDA-Public Use
  Company Number: 2005CG00455

PATIENT
  Age: 44 Year
  Sex: Male

DRUGS (6)
  1. IRESSA [Suspect]
     Indication: LUNG NEOPLASM MALIGNANT
     Dosage: 250 MG QD PO
     Route: 048
     Dates: start: 20050208
  2. CORTANCYL [Concomitant]
  3. EFFERELGAN CODEINE [Concomitant]
  4. RIVOTRIL [Concomitant]
  5. MIDAZOLAM HCL [Concomitant]
  6. AUGMENTIN '125' [Concomitant]

REACTIONS (3)
  - GASTROINTESTINAL HAEMORRHAGE [None]
  - OESOPHAGITIS [None]
  - THERAPY NON-RESPONDER [None]
